FAERS Safety Report 16848204 (Version 1)
Quarter: 2019Q3

REPORT INFORMATION
  Report Type: Report from Study
  Country: US (occurrence: US)
  Receive Date: 20190925
  Receipt Date: 20190925
  Transmission Date: 20191005
  Serious: Yes (Hospitalization)
  Sender: FDA-Public Use
  Company Number: US-ROCHE-2410523

PATIENT

DRUGS (3)
  1. VEMURAFENIB. [Suspect]
     Active Substance: VEMURAFENIB
     Indication: PLASMA CELL MYELOMA
     Dosage: DATE OF MOST RECENT DOSE OF STUDY DRUG:08/AUG/2019
     Route: 048
     Dates: start: 20190726
  2. ROSUVASTATIN. [Concomitant]
     Active Substance: ROSUVASTATIN
  3. COBIMETINIB. [Suspect]
     Active Substance: COBIMETINIB
     Indication: PLASMA CELL MYELOMA
     Dosage: DATE OF MOST RECENT DOSE OF STUDY DRUG: 08/AUG/2019
     Route: 048
     Dates: start: 20190726

REACTIONS (1)
  - Muscular weakness [Recovering/Resolving]

NARRATIVE: CASE EVENT DATE: 20190814
